FAERS Safety Report 16875809 (Version 1)
Quarter: 2019Q4

REPORT INFORMATION
  Report Type: Spontaneous
  Country: US (occurrence: US)
  Receive Date: 20191001
  Receipt Date: 20191001
  Transmission Date: 20200122
  Serious: Yes (Hospitalization)
  Sender: FDA-Public Use
  Company Number: None

PATIENT
  Age: 77 Year
  Sex: Male
  Weight: 102 kg

DRUGS (1)
  1. VITAMIN K [Suspect]
     Active Substance: PHYTONADIONE
     Indication: INTERNATIONAL NORMALISED RATIO INCREASED
     Dosage: ?          OTHER FREQUENCY:ONCE;?
     Route: 041

REACTIONS (6)
  - Palpitations [None]
  - Blood pressure increased [None]
  - Erythema [None]
  - Hypoxia [None]
  - Hyperhidrosis [None]
  - Heart rate increased [None]

NARRATIVE: CASE EVENT DATE: 20190930
